FAERS Safety Report 24990821 (Version 1)
Quarter: 2025Q1

REPORT INFORMATION
  Report Type: Spontaneous
  Country: CN (occurrence: CN)
  Receive Date: 20250220
  Receipt Date: 20250220
  Transmission Date: 20250408
  Serious: Yes (Other)
  Sender: PFIZER
  Company Number: CN-PFIZER INC-PV202500020063

PATIENT
  Age: 59 Year
  Sex: Female

DRUGS (2)
  1. METHOTREXATE SODIUM [Suspect]
     Active Substance: METHOTREXATE SODIUM
     Indication: Chemotherapy
     Dosage: 5 G, 1X/DAY
     Route: 041
     Dates: start: 20250115, end: 20250115
  2. ZUBERITAMAB [Concomitant]
     Active Substance: ZUBERITAMAB
     Indication: Chemotherapy
     Dosage: 600 UNK, 1X/DAY
     Route: 041
     Dates: start: 20250114, end: 20250114

REACTIONS (2)
  - Gastrointestinal disorder [Recovering/Resolving]
  - Nausea [Recovering/Resolving]

NARRATIVE: CASE EVENT DATE: 20250117
